FAERS Safety Report 6149650-5 (Version None)
Quarter: 2009Q2

REPORT INFORMATION
  Report Type: 
  Country: None (occurrence: None)
  Receive Date: 20090409
  Receipt Date: 20090402
  Transmission Date: 20091009
  Serious: Yes (Other)
  Sender: FDA-Public Use
  Company Number: US-AVENTIS-200912744US

PATIENT
  Sex: Male

DRUGS (1)
  1. LOVENOX [Suspect]
     Dates: start: 20090101

REACTIONS (2)
  - CEREBROVASCULAR ACCIDENT [None]
  - FALL [None]
